FAERS Safety Report 11120254 (Version 1)
Quarter: 2015Q2

REPORT INFORMATION
  Report Type: Spontaneous
  Country: FR (occurrence: FR)
  Receive Date: 20150518
  Receipt Date: 20150518
  Transmission Date: 20150821
  Serious: Yes (Death)
  Sender: FDA-Public Use
  Company Number: FR-MYLANLABS-2015M1016111

PATIENT

DRUGS (6)
  1. APREPITANT. [Interacting]
     Active Substance: APREPITANT
     Indication: PROPHYLAXIS OF NAUSEA AND VOMITING
     Dosage: 125MG ON DAY 1
     Route: 065
  2. APREPITANT. [Interacting]
     Active Substance: APREPITANT
     Dosage: 80MG ON DAYS 2 AND 3
     Route: 065
  3. DOXORUBICIN [Concomitant]
     Active Substance: DOXORUBICIN
     Indication: UTERINE LEIOMYOSARCOMA
     Dosage: 75 MG/M2
     Route: 065
  4. IFOSFAMIDE. [Suspect]
     Active Substance: IFOSFAMIDE
     Indication: UTERINE LEIOMYOSARCOMA
     Dosage: 9 G/M2
     Route: 065
  5. DOXORUBICIN [Concomitant]
     Active Substance: DOXORUBICIN
     Dosage: 60 MG/M2
     Route: 065
  6. IFOSFAMIDE. [Interacting]
     Active Substance: IFOSFAMIDE
     Dosage: 5 G/M2
     Route: 065

REACTIONS (2)
  - Drug interaction [Fatal]
  - Encephalopathy [Fatal]
